FAERS Safety Report 7301009-0 (Version None)
Quarter: 2011Q1

REPORT INFORMATION
  Report Type: 
  Country: None (occurrence: None)
  Receive Date: 20110111
  Receipt Date: 20091203
  Transmission Date: 20110831
  Serious: Yes (Other)
  Sender: FDA-Public Use
  Company Number: 2009BH018761

PATIENT
  Age: 32 Year
  Sex: Female
  Weight: 72 kg

DRUGS (12)
  1. CEFUROXIME SODIUM [Concomitant]
  2. ATROVENT [Concomitant]
  3. COLACE [Concomitant]
  4. VANCOMYCIN HCL [Suspect]
     Indication: PNEUMONIA
     Dosage: 1 GM; EVERY 8 HR; IV, 1 GM; EVERY 8 HR; IV
     Route: 042
     Dates: start: 20091201, end: 20091201
  5. VANCOMYCIN HCL [Suspect]
     Indication: PNEUMONIA
     Dosage: 1 GM; EVERY 8 HR; IV, 1 GM; EVERY 8 HR; IV
     Route: 042
     Dates: start: 20091202, end: 20091202
  6. VANCOMYCIN [Suspect]
     Indication: PNEUMONIA
     Dosage: 1.5 GM; EVERY 8 HR; IV
     Route: 042
     Dates: start: 20091201, end: 20091201
  7. MORPHINE [Concomitant]
  8. ZOSYN [Concomitant]
  9. PRILOSEC [Concomitant]
  10. VANCOMYCIN HCL [Suspect]
  11. ALBUTEROL [Concomitant]
  12. HEPARIN [Concomitant]

REACTIONS (1)
  - RENAL FAILURE [None]
